FAERS Safety Report 11976635 (Version 1)
Quarter: 2016Q1

REPORT INFORMATION
  Report Type: Spontaneous
  Country: JP (occurrence: JP)
  Receive Date: 20160129
  Receipt Date: 20160129
  Transmission Date: 20160526
  Serious: Yes (Hospitalization, Other)
  Sender: FDA-Public Use
  Company Number: JP-BRISTOL-MYERS SQUIBB COMPANY-15853534

PATIENT
  Age: 38 Year
  Sex: Female

DRUGS (1)
  1. BARACLUDE [Suspect]
     Active Substance: ENTECAVIR
     Indication: PRODUCT USED FOR UNKNOWN INDICATION
     Dosage: UNK
     Route: 050

REACTIONS (7)
  - In vitro fertilisation [Unknown]
  - Gestational diabetes [Unknown]
  - Normal newborn [Unknown]
  - Exposure via body fluid [Unknown]
  - Postpartum haemorrhage [Unknown]
  - Transfusion [Unknown]
  - Threatened labour [Unknown]

NARRATIVE: CASE EVENT DATE: 20120207
